FAERS Safety Report 9353388 (Version 1)
Quarter: 2013Q2

REPORT INFORMATION
  Report Type: Spontaneous
  Country: US (occurrence: US)
  Receive Date: 20130618
  Receipt Date: 20130618
  Transmission Date: 20140414
  Serious: Yes (Other)
  Sender: FDA-Public Use
  Company Number: US-PFIZER INC-2013179889

PATIENT
  Age: 52 Year
  Sex: Female

DRUGS (2)
  1. LIPITOR [Suspect]
     Dosage: 20 MG, ONCE DAILY
     Route: 048
  2. ANTIVERT [Suspect]
     Dosage: 50 MG, ONCE DAILY
     Route: 048

REACTIONS (5)
  - Systemic lupus erythematosus [Unknown]
  - Antiphospholipid syndrome [Unknown]
  - Accident [Unknown]
  - Patella fracture [Unknown]
  - Fibromyalgia [Unknown]
